FAERS Safety Report 20425665 (Version 1)
Quarter: 2022Q1

REPORT INFORMATION
  Report Type: Report from Study
  Country: US (occurrence: US)
  Receive Date: 20220204
  Receipt Date: 20220204
  Transmission Date: 20220423
  Serious: No
  Sender: FDA-Public Use
  Company Number: US-EXELIXIS-CABO-21039344

PATIENT
  Sex: Male

DRUGS (1)
  1. CABOMETYX [Suspect]
     Active Substance: CABOZANTINIB S-MALATE
     Indication: Renal cancer
     Dosage: 40 MG, QD (MONDAY THROUGH FRIDAY)
     Route: 048
     Dates: start: 20201218, end: 202102

REACTIONS (2)
  - Immune-mediated adverse reaction [Unknown]
  - Inappropriate schedule of product administration [Unknown]
